FAERS Safety Report 10476206 (Version 2)
Quarter: 2014Q4

REPORT INFORMATION
  Report Type: Spontaneous
  Country: AU (occurrence: AU)
  Receive Date: 20140925
  Receipt Date: 20141110
  Transmission Date: 20150528
  Serious: Yes (Hospitalization, Other)
  Sender: FDA-Public Use
  Company Number: AU-BAXTER-2014BAX057621

PATIENT
  Sex: Female
  Weight: 74 kg

DRUGS (4)
  1. DIANEAL [Suspect]
     Active Substance: CALCIUM CHLORIDE\DEXTROSE\MAGNESIUM CHLORIDE\SODIUM CHLORIDE\SODIUM LACTATE
     Dosage: 2X1.5L BAGS
     Route: 033
     Dates: start: 201407
  2. DIANEAL [Suspect]
     Active Substance: CALCIUM CHLORIDE\DEXTROSE\MAGNESIUM CHLORIDE\SODIUM CHLORIDE\SODIUM LACTATE
     Indication: PERITONEAL DIALYSIS
     Dosage: 2X2.5L BAGS
     Route: 033
     Dates: start: 201407
  3. DIANEAL [Suspect]
     Active Substance: CALCIUM CHLORIDE\DEXTROSE\MAGNESIUM CHLORIDE\SODIUM CHLORIDE\SODIUM LACTATE
     Indication: PERITONEAL DIALYSIS
     Dosage: 2X2.5L BAGS
     Route: 033
     Dates: start: 201407
  4. DIANEAL [Suspect]
     Active Substance: CALCIUM CHLORIDE\DEXTROSE\MAGNESIUM CHLORIDE\SODIUM CHLORIDE\SODIUM LACTATE
     Dosage: 2X1.5L BAGS
     Route: 033
     Dates: start: 201407

REACTIONS (6)
  - Hypotension [Unknown]
  - Fluid retention [Unknown]
  - Fall [Unknown]
  - Peritoneal dialysis complication [Unknown]
  - Dehydration [Unknown]
  - Weight decreased [Unknown]
